FAERS Safety Report 25934828 (Version 1)
Quarter: 2025Q4

REPORT INFORMATION
  Report Type: Spontaneous
  Country: GB (occurrence: GB)
  Receive Date: 20251017
  Receipt Date: 20251017
  Transmission Date: 20260118
  Serious: Yes (Other)
  Sender: RANBAXY
  Company Number: GB-MHRA-TPP11869258C6141585YC1759501805037

PATIENT
  Age: 73 Year
  Sex: Female
  Weight: 84 kg

DRUGS (10)
  1. ROSUVASTATIN [Suspect]
     Active Substance: ROSUVASTATIN
     Indication: Product used for unknown indication
     Dosage: 10 MILLIGRAM, DAILY
     Route: 065
     Dates: start: 20250221
  2. ACTILYMPH CLASS [Concomitant]
     Indication: Ill-defined disorder
     Dosage: UNK
     Route: 065
     Dates: start: 20250812
  3. FLUTICASONE [Concomitant]
     Active Substance: FLUTICASONE
     Indication: Ill-defined disorder
     Dosage: TWO DOSES IN EACH NOSTRIL ONCE DAILY
     Route: 065
     Dates: start: 20250912
  4. EMPAGLIFLOZIN [Concomitant]
     Active Substance: EMPAGLIFLOZIN
     Indication: Ill-defined disorder
     Dosage: TAKE ONE DAILY
     Route: 065
     Dates: start: 20250507
  5. LINAGLIPTIN [Concomitant]
     Active Substance: LINAGLIPTIN
     Indication: Ill-defined disorder
     Dosage: TAKE ONE DAILY
     Route: 065
     Dates: start: 20241209
  6. CETIRIZINE [Concomitant]
     Active Substance: CETIRIZINE HYDROCHLORIDE
     Indication: Ill-defined disorder
     Dosage: 1  DAILY
     Route: 065
     Dates: start: 20241209
  7. LANOLIN\LIGHT MINERAL OIL\PARAFFIN [Concomitant]
     Active Substance: LANOLIN\LIGHT MINERAL OIL\PARAFFIN
     Indication: Ill-defined disorder
     Dosage: AS DIRECTED
     Route: 065
     Dates: start: 20241209
  8. LEVOTHYROXINE [Concomitant]
     Active Substance: LEVOTHYROXINE
     Indication: Ill-defined disorder
     Dosage: ONE A DAY
     Route: 065
     Dates: start: 20241209
  9. PERINDOPRIL ERBUMINE [Concomitant]
     Active Substance: PERINDOPRIL ERBUMINE
     Indication: Ill-defined disorder
     Dosage: ONE TO BE TAKEN IN THE MORNING
     Route: 065
     Dates: start: 20241209
  10. Sukkarto sr [Concomitant]
     Indication: Ill-defined disorder
     Dosage: TAKE TWO WITH EVENING MEAL
     Route: 065
     Dates: start: 20241209

REACTIONS (2)
  - Myalgia [Unknown]
  - Muscle spasms [Recovering/Resolving]
